FAERS Safety Report 7643622-7 (Version None)
Quarter: 2011Q3

REPORT INFORMATION
  Report Type: 
  Country: None (occurrence: None)
  Receive Date: 20110729
  Receipt Date: 20110722
  Transmission Date: 20111222
  Serious: Yes (Other)
  Sender: FDA-Public Use
  Company Number: PHHY2011US65528

PATIENT
  Sex: Female
  Weight: 57 kg

DRUGS (1)
  1. ZOMETA [Suspect]
     Indication: MULTIPLE MYELOMA
     Dosage: 4 MG, QMO
     Route: 042
     Dates: start: 20071226, end: 20100911

REACTIONS (7)
  - PRIMARY SEQUESTRUM [None]
  - GINGIVAL INFECTION [None]
  - PAIN IN JAW [None]
  - OSTEONECROSIS OF JAW [None]
  - ERYTHEMA [None]
  - BONE LESION [None]
  - OSTEITIS [None]
